FAERS Safety Report 17461836 (Version 2)
Quarter: 2020Q1

REPORT INFORMATION
  Report Type: Spontaneous
  Country: GR (occurrence: GR)
  Receive Date: 20200226
  Receipt Date: 20200313
  Transmission Date: 20200409
  Serious: Yes (Hospitalization)
  Sender: FDA-Public Use
  Company Number: GR-ASTRAZENECA-2020SE24464

PATIENT
  Sex: Female
  Weight: 60 kg

DRUGS (29)
  1. CUBICIN [Suspect]
     Active Substance: DAPTOMYCIN
     Indication: NON-HODGKIN^S LYMPHOMA
     Dosage: 350 MG 1 CYCLE
     Route: 042
     Dates: start: 20200102, end: 20200113
  2. LASIX [Suspect]
     Active Substance: FUROSEMIDE
     Indication: NON-HODGKIN^S LYMPHOMA
     Dosage: 1 CYCLE
     Route: 042
     Dates: start: 20200110, end: 20200113
  3. MEROPENEM. [Suspect]
     Active Substance: MEROPENEM
     Indication: NON-HODGKIN^S LYMPHOMA
     Dosage: 1 CYCLE 2G X 3
     Route: 042
     Dates: start: 20200103, end: 20200113
  4. MABTHERA [Suspect]
     Active Substance: RITUXIMAB
     Indication: NON-HODGKIN^S LYMPHOMA
     Dosage: 1400 MG 1 CYCLES
     Route: 058
     Dates: start: 20191113, end: 20191210
  5. RITUXIMAB, HYALURONIDASE [Suspect]
     Active Substance: HYALURONIDASE (HUMAN RECOMBINANT)\RITUXIMAB
     Indication: DIFFUSE LARGE B-CELL LYMPHOMA
     Dosage: 3 CYCLES
     Route: 058
     Dates: start: 20190513, end: 20190625
  6. ARACYTINE [Suspect]
     Active Substance: CYTARABINE
     Dosage: 3 G 2 CYCLES
     Route: 042
     Dates: start: 20191123, end: 20200113
  7. CHOP [Suspect]
     Active Substance: CYCLOPHOSPHAMIDE\DOXORUBICIN\PREDNISONE\VINCRISTINE
     Indication: DIFFUSE LARGE B-CELL LYMPHOMA
     Dosage: 8 CYCLES
     Route: 065
     Dates: start: 20190513, end: 20191013
  8. CHLORPHENAMINE [Suspect]
     Active Substance: CHLORPHENIRAMINE MALEATE
     Dosage: 1 CYCLE
     Route: 048
     Dates: start: 20200110, end: 20200112
  9. EPOETIN [Suspect]
     Active Substance: ERYTHROPOIETIN
     Indication: ANAEMIA
     Dosage: 1 CYCLE
     Route: 058
     Dates: start: 20190523, end: 20200124
  10. ALDACTONE [Suspect]
     Active Substance: SPIRONOLACTONE
     Dosage: UNKNOWN
     Route: 048
  11. NORVASC [Suspect]
     Active Substance: AMLODIPINE BESYLATE
     Dosage: UNKNOWN
     Route: 048
  12. OMEPRAZOLE. [Suspect]
     Active Substance: OMEPRAZOLE
     Indication: NON-HODGKIN^S LYMPHOMA
     Dosage: 1 CYCLES TWICE
     Route: 048
     Dates: start: 20191223, end: 20200113
  13. ALDACTONE [Suspect]
     Active Substance: SPIRONOLACTONE
     Dosage: 100 MG 1 CYCLE
     Route: 048
     Dates: start: 20200105, end: 20200112
  14. MABTHERA [Suspect]
     Active Substance: RITUXIMAB
     Indication: NON-HODGKIN^S LYMPHOMA
     Dosage: 650 MG 1 CYCLES
     Route: 058
     Dates: start: 20191222, end: 20200113
  15. FILGRASTIM [Suspect]
     Active Substance: FILGRASTIM
     Indication: LEUKOPENIA
     Route: 058
     Dates: start: 20190523, end: 20200117
  16. HUMAN SERUM ALBUMIN [Suspect]
     Active Substance: ALBUMIN HUMAN
     Indication: NON-HODGKIN^S LYMPHOMA
     Dosage: 1 CYLCE 50MG X2
     Route: 042
     Dates: start: 20200110, end: 20200113
  17. VEPESID [Suspect]
     Active Substance: ETOPOSIDE
     Dosage: UNKNOWN
     Route: 042
  18. CANCIDAS [Suspect]
     Active Substance: CASPOFUNGIN ACETATE
     Indication: NON-HODGKIN^S LYMPHOMA
     Dosage: 50.0MG UNKNOWN
     Route: 042
     Dates: start: 20200105, end: 20200113
  19. MABTHERA [Suspect]
     Active Substance: RITUXIMAB
     Indication: NON-HODGKIN^S LYMPHOMA
     Dosage: 1400 MG 6 CYCLES
     Route: 058
     Dates: start: 20190725, end: 20191009
  20. NORVASC [Suspect]
     Active Substance: AMLODIPINE BESYLATE
     Dosage: 1 CYCLE
     Route: 048
     Dates: start: 20190515, end: 20190516
  21. CISPLATIN. [Suspect]
     Active Substance: CISPLATIN
     Dosage: 38 MG 2 CYCLES
     Route: 042
     Dates: start: 20191119, end: 20200113
  22. VALTREX [Suspect]
     Active Substance: VALACYCLOVIR HYDROCHLORIDE
     Dosage: 500 G CYCLE
     Route: 048
     Dates: start: 20200108, end: 20200113
  23. RITUXIMAB. [Suspect]
     Active Substance: RITUXIMAB
     Dosage: 2 CYCLES
     Route: 042
     Dates: start: 20191113, end: 20191223
  24. RITUXIMAB. [Suspect]
     Active Substance: RITUXIMAB
     Indication: DIFFUSE LARGE B-CELL LYMPHOMA
     Dosage: 8 CYCLES
     Route: 042
     Dates: start: 20190513, end: 20191013
  25. VALTREX [Suspect]
     Active Substance: VALACYCLOVIR HYDROCHLORIDE
     Dosage: 500 G1 CYCLE500.0MG UNKNOWN
     Route: 048
     Dates: start: 20190513, end: 20190516
  26. VEPESID [Suspect]
     Active Substance: ETOPOSIDE
     Dosage: 90 MG 2 CYCLE90.0MG UNKNOWN
     Route: 042
     Dates: start: 20191119, end: 20200113
  27. DOXORUBICIN [Suspect]
     Active Substance: DOXORUBICIN
     Dosage: 8 CYCLES75.0MG UNKNOWN
     Route: 042
     Dates: start: 20190513, end: 20191009
  28. ESHAP [Suspect]
     Active Substance: CISPLATIN\CYTARABINE\ETOPOSIDE\METHYLPREDNISOLONE (ESHAP)
     Indication: DIFFUSE LARGE B-CELL LYMPHOMA
     Dosage: 2 CYCLES
     Route: 065
     Dates: start: 20191113, end: 20191223
  29. DOXORUBICIN [Suspect]
     Active Substance: DOXORUBICIN
     Indication: NON-HODGKIN^S LYMPHOMA
     Route: 058

REACTIONS (2)
  - Disease progression [Unknown]
  - Diffuse large B-cell lymphoma refractory [Unknown]
